FAERS Safety Report 10622717 (Version 1)
Quarter: 2014Q4

REPORT INFORMATION
  Report Type: Spontaneous
  Country: US (occurrence: None)
  Receive Date: 20141202
  Receipt Date: 20141202
  Transmission Date: 20150529
  Serious: No
  Sender: FDA-Public Use
  Company Number: None

PATIENT
  Age: 30 Year
  Sex: Female
  Weight: 77.11 kg

DRUGS (1)
  1. DEPO-MEDROL [Suspect]
     Active Substance: METHYLPREDNISOLONE ACETATE
     Indication: MULTIPLE ALLERGIES
     Dosage: 1 SHOT; FIRST TIME
     Route: 030

REACTIONS (3)
  - Muscle tone disorder [None]
  - Deformity [None]
  - Injection site pain [None]

NARRATIVE: CASE EVENT DATE: 20140523
